FAERS Safety Report 20329127 (Version 1)
Quarter: 2022Q1

REPORT INFORMATION
  Report Type: Report from Study
  Country: CO (occurrence: CO)
  Receive Date: 20220112
  Receipt Date: 20220112
  Transmission Date: 20220424
  Serious: Yes (Other)
  Sender: FDA-Public Use
  Company Number: CO-NOVARTISPH-NVSC2022CO004716

PATIENT
  Sex: Male
  Weight: 78 kg

DRUGS (2)
  1. LOSARTAN [Suspect]
     Active Substance: LOSARTAN
     Indication: Hypertension
     Dosage: 50 MG, BID (MORE THAN 23 YEARS AGO (DOES NOT REMEMBER EXACT DATE)
     Route: 048
  2. HYDROCHLOROTHIAZIDE [Concomitant]
     Active Substance: HYDROCHLOROTHIAZIDE
     Indication: Hypertension
     Dosage: DOES NOT REMEMBER, QD (MORE THAN 23 YEARS AGO (DOES NOT REMEMBER EXACT DATE)
     Route: 048

REACTIONS (2)
  - Diabetes mellitus [Unknown]
  - Product prescribing error [Unknown]
